FAERS Safety Report 4862127-X (Version None)
Quarter: 2005Q4

REPORT INFORMATION
  Report Type: 
  Country: None (occurrence: None)
  Receive Date: 20051221
  Receipt Date: 20051209
  Transmission Date: 20060501
  Serious: Yes (Other)
  Sender: FDA-Public Use
  Company Number: CA-BRISTOL-MYERS SQUIBB COMPANY-13219092

PATIENT
  Age: 76 Year
  Sex: Female

DRUGS (13)
  1. TEQUIN [Suspect]
     Route: 048
  2. ENTERIC COATED ACETYLSALICYLIC ACID [Concomitant]
  3. CALCIUM + VITAMIN D [Concomitant]
  4. DIABETA [Concomitant]
  5. FERROUS SULFATE TAB [Concomitant]
  6. GLUCOPHAGE [Concomitant]
  7. HYDROCHLOROTHIAZIDE [Concomitant]
  8. LASIX [Concomitant]
  9. NORVASC [Concomitant]
  10. QUININE [Concomitant]
  11. SERAX [Concomitant]
  12. SYNTHROID [Concomitant]
  13. ZYLOPRIM [Concomitant]

REACTIONS (1)
  - HYPOGLYCAEMIA [None]
